FAERS Safety Report 25799138 (Version 3)
Quarter: 2025Q3

REPORT INFORMATION
  Report Type: Spontaneous
  Country: US (occurrence: US)
  Receive Date: 20250913
  Receipt Date: 20250922
  Transmission Date: 20251020
  Serious: Yes (Other)
  Sender: AUROBINDO
  Company Number: US-AUROBINDO-AUR-APL-2025-045522

PATIENT
  Age: 24 Year
  Sex: Female

DRUGS (21)
  1. ADENOSINE [Suspect]
     Active Substance: ADENOSINE
     Indication: Supraventricular tachycardia
     Route: 042
  2. ADENOSINE [Suspect]
     Active Substance: ADENOSINE
     Route: 042
  3. ADENOSINE [Suspect]
     Active Substance: ADENOSINE
     Route: 042
  4. NOREPINEPHRINE [Suspect]
     Active Substance: NOREPINEPHRINE
     Indication: Cardiogenic shock
     Route: 065
  5. PROCAINAMIDE HYDROCHLORIDE [Suspect]
     Active Substance: PROCAINAMIDE HYDROCHLORIDE
     Indication: Tachycardia
     Route: 065
  6. METOPROLOL TARTRATE [Concomitant]
     Active Substance: METOPROLOL TARTRATE
     Indication: Arrhythmia
     Dosage: 12.5 MILLIGRAM, TWO TIMES A DAY
     Route: 065
  7. METOPROLOL TARTRATE [Concomitant]
     Active Substance: METOPROLOL TARTRATE
     Dosage: 25 MILLIGRAM, TWO TIMES A DAY
     Route: 065
  8. ENALAPRIL [Concomitant]
     Active Substance: ENALAPRIL
     Indication: Cardiac disorder
     Route: 065
  9. PHENOXYBENZAMINE [Concomitant]
     Active Substance: PHENOXYBENZAMINE
     Indication: Paraganglion neoplasm
     Route: 065
  10. NALBUPHINE [Concomitant]
     Active Substance: NALBUPHINE
     Indication: Abdominal pain
     Route: 065
  11. LORAZEPAM [Concomitant]
     Active Substance: LORAZEPAM
     Indication: Nausea
     Route: 065
  12. FLUMAZENIL [Concomitant]
     Active Substance: FLUMAZENIL
     Indication: Product used for unknown indication
     Route: 065
  13. AMIODARONE [Concomitant]
     Active Substance: AMIODARONE
     Indication: Atrial tachycardia
     Route: 065
  14. AMIODARONE [Concomitant]
     Active Substance: AMIODARONE
     Route: 065
  15. AMIODARONE [Concomitant]
     Active Substance: AMIODARONE
     Dosage: 200 MILLIGRAM, TWO TIMES A DAY
     Route: 065
  16. AMIODARONE [Concomitant]
     Active Substance: AMIODARONE
     Dosage: 100 MILLIGRAM, TWO TIMES A DAY
     Route: 065
  17. DOXAZOSIN [Concomitant]
     Active Substance: DOXAZOSIN MESYLATE
     Indication: Haemodynamic instability
     Route: 065
  18. ATIVAN [Concomitant]
     Active Substance: LORAZEPAM
     Indication: Nausea
     Route: 065
  19. SPIRONOLACTONE [Concomitant]
     Active Substance: SPIRONOLACTONE
     Indication: Product used for unknown indication
     Route: 065
  20. SILDENAFIL [Concomitant]
     Active Substance: SILDENAFIL
     Indication: Product used for unknown indication
     Route: 065
  21. LOVENOX [Concomitant]
     Active Substance: ENOXAPARIN SODIUM
     Indication: Product used for unknown indication
     Route: 065

REACTIONS (1)
  - Drug ineffective [Unknown]
